FAERS Safety Report 9639713 (Version 1)
Quarter: 2013Q4

REPORT INFORMATION
  Report Type: Spontaneous
  Country: US (occurrence: None)
  Receive Date: 20131021
  Receipt Date: 20131021
  Transmission Date: 20140711
  Serious: No
  Sender: FDA-Public Use
  Company Number: None

PATIENT
  Age: 65 Year
  Sex: Female

DRUGS (6)
  1. BOTOX [Suspect]
     Indication: FACIAL SPASM
     Dosage: 22 UNITS INJECTION
     Dates: start: 20130515, end: 20130724
  2. AVAPRO [Concomitant]
  3. UNSPECIFIED INGREDIENT [Concomitant]
  4. THYROID [Concomitant]
  5. OMEPRAZOLE [Concomitant]
  6. BACITRAIN [Concomitant]

REACTIONS (7)
  - Oropharyngeal pain [None]
  - Diplopia [None]
  - Myalgia [None]
  - Nausea [None]
  - Glossodynia [None]
  - Oedema peripheral [None]
  - Swelling face [None]
